FAERS Safety Report 6004382-9 (Version None)
Quarter: 2008Q4

REPORT INFORMATION
  Report Type: 
  Country: None (occurrence: None)
  Receive Date: 20081216
  Receipt Date: 20081210
  Transmission Date: 20090506
  Serious: Yes (Other)
  Sender: FDA-Public Use
  Company Number: CZ-ELI_LILLY_AND_COMPANY-CZ200806004348

PATIENT
  Sex: Female

DRUGS (7)
  1. STRATTERA [Suspect]
     Indication: ATTENTION DEFICIT/HYPERACTIVITY DISORDER
     Dosage: 40 MG, DAILY (1/D)
     Route: 048
     Dates: start: 20080513, end: 20080604
  2. STRATTERA [Suspect]
     Dosage: 25 MG, DAILY (1/D)
     Route: 065
     Dates: start: 20080607
  3. ZELDOX [Concomitant]
     Dosage: 40 MG, UNKNOWN
     Route: 048
  4. CONVULEX [Concomitant]
     Indication: EPILEPSY
     Dosage: 200 MG, UNKNOWN
     Route: 048
  5. CONVULEX [Concomitant]
     Dosage: 250 MG, UNKNOWN
     Route: 048
     Dates: start: 20080601
  6. AERIUS [Concomitant]
     Indication: HYPERSENSITIVITY
     Dosage: 5 MG, UNKNOWN
     Route: 048
  7. RISPERIDONE [Concomitant]

REACTIONS (1)
  - PARTIAL SEIZURES [None]
